FAERS Safety Report 4682275-7 (Version None)
Quarter: 2005Q2

REPORT INFORMATION
  Report Type: 
  Country: None (occurrence: None)
  Receive Date: 20050602
  Receipt Date: 20050602
  Transmission Date: 20051028
  Serious: Yes (Life-Threatening)
  Sender: FDA-Public Use
  Company Number: None

PATIENT
  Age: 58 Year
  Sex: Male
  Weight: 87.9978 kg

DRUGS (5)
  1. REOPRO [Suspect]
     Dosage: 22 MG BOLUS IV PUSH THEN 0.125MCG/KG/MIN
     Route: 042
  2. TAXOL [Concomitant]
  3. ANGIOMAX [Concomitant]
  4. ASPIRIN [Concomitant]
  5. PLAVIX [Concomitant]

REACTIONS (3)
  - EPIGLOTTIC OEDEMA [None]
  - LOCALISED OEDEMA [None]
  - THROMBOCYTOPENIA [None]
